FAERS Safety Report 17448989 (Version 2)
Quarter: 2020Q1

REPORT INFORMATION
  Report Type: Spontaneous
  Country: DE (occurrence: DE)
  Receive Date: 20200224
  Receipt Date: 20200323
  Transmission Date: 20200409
  Serious: Yes (Other)
  Sender: FDA-Public Use
  Company Number: DE-B.I. PHARMACEUTICALS,INC./RIDGEFIELD-2020-BI-009434

PATIENT
  Age: 45 Year
  Sex: Male
  Weight: 84 kg

DRUGS (6)
  1. DECORTIN H [Concomitant]
     Active Substance: PREDNISOLONE
     Route: 048
  2. OFEV [Suspect]
     Active Substance: NINTEDANIB
     Indication: INTERSTITIAL LUNG DISEASE
     Route: 065
  3. ATACAND [Concomitant]
     Active Substance: CANDESARTAN CILEXETIL
     Indication: HYPERTENSION
     Dosage: 8/12.5MG
     Route: 048
  4. OFEV [Suspect]
     Active Substance: NINTEDANIB
     Route: 065
     Dates: start: 20200108
  5. L-THYROXIN [LEVOTHYROXINE] [Concomitant]
     Active Substance: LEVOTHYROXINE SODIUM
     Dosage: 75/100MCG
     Route: 048
  6. CONCOR COR [Concomitant]
     Active Substance: BISOPROLOL FUMARATE
     Indication: HYPERTENSION
     Route: 048

REACTIONS (5)
  - Gait inability [Unknown]
  - Off label use [Unknown]
  - Tendon pain [Unknown]
  - Muscle rupture [Unknown]
  - Arthralgia [Unknown]
